FAERS Safety Report 9174327 (Version 1)
Quarter: 2013Q1

REPORT INFORMATION
  Report Type: Spontaneous
  Country: AU (occurrence: None)
  Receive Date: 20130318
  Receipt Date: 20130318
  Transmission Date: 20140127
  Serious: Yes (Hospitalization)
  Sender: FDA-Public Use
  Company Number: 1625824

PATIENT
  Age: 54 Year
  Sex: Male

DRUGS (3)
  1. CARBOPLATIN [Suspect]
     Indication: NEUROENDOCRINE CARCINOMA METASTATIC
     Dosage: AUC 5, UNKNOWN
  2. CARBOPLATIN [Suspect]
     Indication: NEUROENDOCRINE CARCINOMA METASTATIC
     Dosage: AUC 5, UNKNOWN
  3. ETOPOSIDE [Suspect]

REACTIONS (12)
  - Abdominal pain [None]
  - Vomiting [None]
  - Lethargy [None]
  - Multi-organ failure [None]
  - Renal impairment [None]
  - Alanine aminotransferase increased [None]
  - Gamma-glutamyltransferase increased [None]
  - Blood alkaline phosphatase increased [None]
  - International normalised ratio increased [None]
  - Anuria [None]
  - Dyspnoea [None]
  - Angina pectoris [None]
